FAERS Safety Report 8116029-6 (Version None)
Quarter: 2012Q1

REPORT INFORMATION
  Report Type: 
  Country: None (occurrence: None)
  Receive Date: 20120206
  Receipt Date: 20120131
  Transmission Date: 20120608
  Serious: Yes (Hospitalization, Other)
  Sender: FDA-Public Use
  Company Number: JP-BAYER-200914059BYL

PATIENT
  Age: 62 Year
  Sex: Male
  Weight: 64.2 kg

DRUGS (11)
  1. NEXAVAR [Suspect]
     Route: 048
     Dates: start: 20091101, end: 20091211
  2. LAMIVUDINE [Suspect]
     Indication: HEPATITIS B VIRUS TEST POSITIVE
     Dosage: 1 DF (DAILY DOSE), , ORAL
     Route: 048
     Dates: start: 20060801
  3. JUZENTAIHOTO [Concomitant]
     Dosage: 7.5 G (DAILY DOSE), , ORAL
     Route: 048
  4. URSO 250 [Concomitant]
     Dosage: 600 MG (DAILY DOSE), , ORAL
     Route: 048
  5. KERATINAMIN [Concomitant]
     Route: 061
  6. NEXAVAR [Suspect]
     Route: 048
     Dates: start: 20091019
  7. CISPLATIN [Concomitant]
     Dosage: 65 MG (DAILY DOSE), , INTRA-ARTERIAL
     Route: 013
     Dates: start: 20090805, end: 20090805
  8. NORVASC [Concomitant]
     Dosage: 10 MG (DAILY DOSE), , ORAL
     Route: 048
     Dates: start: 20090928
  9. LANSOPRAZOLE [Concomitant]
     Dosage: 60 MG (DAILY DOSE), , ORAL
     Route: 048
  10. FOIPAN [Concomitant]
     Dosage: SINCE BEFORE 2005
     Route: 048
  11. NEXAVAR [Suspect]
     Indication: HEPATIC NEOPLASM MALIGNANT
     Route: 048
     Dates: start: 20090904, end: 20091018

REACTIONS (5)
  - PALMAR-PLANTAR ERYTHRODYSAESTHESIA SYNDROME [None]
  - GASTRIC HAEMORRHAGE [None]
  - DECREASED APPETITE [None]
  - ANAEMIA [None]
  - MALAISE [None]
